FAERS Safety Report 7428378-5 (Version None)
Quarter: 2011Q2

REPORT INFORMATION
  Report Type: 
  Country: None (occurrence: None)
  Receive Date: 20110412
  Receipt Date: 20110405
  Transmission Date: 20111010
  Serious: Yes (Hospitalization)
  Sender: FDA-Public Use
  Company Number: WAES 1103USA03631

PATIENT
  Age: 32 Year

DRUGS (2)
  1. LOPINAVIR/RITONAVIR [Suspect]
     Dates: start: 20110208
  2. ISENTRESS [Suspect]
     Indication: HIV INFECTION
     Dosage: 1 TAB, BID, PO
     Route: 048
     Dates: start: 20110208

REACTIONS (1)
  - GASTROENTERITIS [None]
